FAERS Safety Report 23877045 (Version 1)
Quarter: 2024Q2

REPORT INFORMATION
  Report Type: Report from Study
  Country: ES (occurrence: ES)
  Receive Date: 20240521
  Receipt Date: 20240521
  Transmission Date: 20240716
  Serious: Yes (Other)
  Sender: FDA-Public Use
  Company Number: ES-CELLTRION INC.-2024ES011322

PATIENT

DRUGS (13)
  1. RITUXIMAB [Suspect]
     Active Substance: RITUXIMAB
     Indication: Myasthenia gravis
     Dosage: 1 CYCLE
     Route: 042
     Dates: start: 20220127
  2. COMIRNATY (TOZINAMERAN) [Suspect]
     Active Substance: TOZINAMERAN
     Indication: COVID-19 immunisation
     Dosage: 0.3 ML, 1 TOTAL (DOSIS 1)
     Route: 030
     Dates: start: 20210920, end: 20210920
  3. COMIRNATY (TOZINAMERAN) [Suspect]
     Active Substance: TOZINAMERAN
     Dosage: 0.3 ML, 1 TOTAL (DOSIS 3)
     Route: 030
     Dates: start: 20220407, end: 20220407
  4. BILASTINE [Concomitant]
     Active Substance: BILASTINE
     Dosage: 20 MG, QD
     Route: 048
     Dates: start: 20130513
  5. TACROLIMUS [Concomitant]
     Active Substance: TACROLIMUS
     Dosage: UNK
     Route: 048
     Dates: start: 2017
  6. FLUTICASONE FUROATE [Concomitant]
     Active Substance: FLUTICASONE FUROATE
     Dosage: AS NECESSARY
     Route: 045
  7. OLMESARTAN [Concomitant]
     Active Substance: OLMESARTAN
     Dosage: 40 MG
     Route: 048
     Dates: start: 20220328
  8. MYCOPHENOLATE MOFETIL [Concomitant]
     Active Substance: MYCOPHENOLATE MOFETIL
     Dosage: UNK
     Route: 048
     Dates: start: 2018
  9. LANSOPRAZOL CINFA [Concomitant]
     Dosage: 30 MILLIGRAM
     Route: 048
     Dates: start: 20161227
  10. RINGO [Concomitant]
     Dosage: UNK
     Route: 067
     Dates: start: 20210226
  11. MONTELUKAST [Concomitant]
     Active Substance: MONTELUKAST SODIUM
     Dosage: 10 MG, QD
     Route: 048
     Dates: start: 20130426
  12. CHOLECALCIFEROL [Concomitant]
     Active Substance: CHOLECALCIFEROL
     Dosage: 25000 INTERNATIONAL UNIT, EVEYR 15 DAYS
     Route: 048
     Dates: start: 20200703
  13. MESTINON [Concomitant]
     Active Substance: PYRIDOSTIGMINE BROMIDE
     Dosage: UNK
     Route: 048
     Dates: start: 20220328

REACTIONS (2)
  - Rectal haemorrhage [Recovered/Resolved]
  - Intentional product use issue [Unknown]

NARRATIVE: CASE EVENT DATE: 20220414
